FAERS Safety Report 25235219 (Version 1)
Quarter: 2025Q2

REPORT INFORMATION
  Report Type: Spontaneous
  Country: US (occurrence: None)
  Receive Date: 20250423
  Receipt Date: 20250423
  Transmission Date: 20250717
  Serious: Yes (Disabling, Other)
  Sender: FDA-CTU
  Company Number: None

PATIENT
  Age: 54 Year
  Sex: Male
  Weight: 103.5 kg

DRUGS (21)
  1. LEVAQUIN [Suspect]
     Active Substance: LEVOFLOXACIN
     Indication: Infection
     Dosage: OTHER QUANTITY : 1 TABLET(S);?FREQUENCY : DAILY;?
     Route: 048
     Dates: start: 20221020, end: 20221109
  2. CARBAMAZEPINE [Concomitant]
     Active Substance: CARBAMAZEPINE
  3. NORTRIPTYLINE [Concomitant]
     Active Substance: NORTRIPTYLINE
  4. BACLOFEN [Concomitant]
     Active Substance: BACLOFEN
  5. TESTOSTERONE [Concomitant]
     Active Substance: TESTOSTERONE
  6. RIZATRIPTAN [Concomitant]
     Active Substance: RIZATRIPTAN
  7. Colloidal Minerals [Concomitant]
  8. 3 types of magnesium [Concomitant]
  9. GLYCINE [Concomitant]
     Active Substance: GLYCINE
  10. OMEGA-3 ACIDS [Concomitant]
     Active Substance: OMEGA-3 FATTY ACIDS
  11. COENZYME Q10 [Concomitant]
     Active Substance: DIETARY SUPPLEMENT\UBIDECARENONE
  12. HERBALS\TURMERIC [Concomitant]
     Active Substance: HERBALS\TURMERIC
  13. VITAMIN C [Concomitant]
     Active Substance: ASCORBIC ACID
  14. COLLAGEN [Concomitant]
     Active Substance: COLLAGEN
  15. GLUTATHIONE [Concomitant]
     Active Substance: GLUTATHIONE
  16. SACCHAROMYCES [Concomitant]
     Active Substance: SACCHAROMYCES CEREVISIAE
  17. VITAMIN B COMPLEX [Concomitant]
     Active Substance: CYANOCOBALAMIN\DEXPANTHENOL\NIACINAMIDE\PYRIDOXINE HYDROCHLORIDE\RIBOFLAVIN 5^-PHOSPHATE SODIUM\THIA
  18. SELENIUM [Concomitant]
     Active Substance: SELENIUM
  19. NAC [Concomitant]
  20. VITAMIN D3 [Concomitant]
     Active Substance: CHOLECALCIFEROL
  21. JWH-018 [Concomitant]
     Active Substance: JWH-018

REACTIONS (7)
  - Plantar fasciitis [None]
  - Migraine [None]
  - Sinus disorder [None]
  - Asthenia [None]
  - Rotator cuff syndrome [None]
  - Tendon pain [None]
  - Pain [None]

NARRATIVE: CASE EVENT DATE: 20221020
